FAERS Safety Report 18543544 (Version 1)
Quarter: 2020Q4

REPORT INFORMATION
  Report Type: Spontaneous
  Country: US (occurrence: US)
  Receive Date: 20201125
  Receipt Date: 20201125
  Transmission Date: 20210114
  Serious: Yes (Other)
  Sender: FDA-Public Use
  Company Number: US-CIPLA LTD.-2020US08791

PATIENT

DRUGS (8)
  1. OXALIPLATIN. [Suspect]
     Active Substance: OXALIPLATIN
     Indication: DUCTAL ADENOCARCINOMA OF PANCREAS
     Dosage: UNK, CYCLICAL
     Route: 065
     Dates: start: 201904, end: 201905
  2. FOLIC ACID. [Suspect]
     Active Substance: FOLIC ACID
     Dosage: UNK, REDUCED DOSE (5 CYLES)
     Route: 065
     Dates: start: 201905, end: 201907
  3. OXALIPLATIN. [Suspect]
     Active Substance: OXALIPLATIN
     Dosage: UNK, REDUCED DOSE (5 CYCLES)
     Route: 065
     Dates: start: 201905, end: 201907
  4. 5-FU [FLUOROURACIL] [Suspect]
     Active Substance: FLUOROURACIL
     Indication: DUCTAL ADENOCARCINOMA OF PANCREAS
     Dosage: UNK, CYCLICAL
     Route: 065
     Dates: start: 201904, end: 201905
  5. FOLIC ACID. [Suspect]
     Active Substance: FOLIC ACID
     Indication: DUCTAL ADENOCARCINOMA OF PANCREAS
     Dosage: UNK, CYCLICAL
     Route: 065
     Dates: start: 201904, end: 201905
  6. IRINOTECAN [Suspect]
     Active Substance: IRINOTECAN
     Indication: DUCTAL ADENOCARCINOMA OF PANCREAS
     Dosage: UNK, CYCLICAL
     Route: 065
     Dates: start: 201904, end: 201905
  7. IRINOTECAN [Suspect]
     Active Substance: IRINOTECAN
     Dosage: UNK, DOSE DECREASED (5 CYCLES)
     Route: 065
     Dates: start: 201905, end: 201907
  8. 5-FU [FLUOROURACIL] [Suspect]
     Active Substance: FLUOROURACIL
     Dosage: UNK, REDUCED DOSE (5 CYLES)
     Route: 065
     Dates: start: 201905, end: 201907

REACTIONS (2)
  - Neuropathy peripheral [Unknown]
  - Nausea [Unknown]

NARRATIVE: CASE EVENT DATE: 201905
